FAERS Safety Report 10185017 (Version 2)
Quarter: 2014Q3

REPORT INFORMATION
  Report Type: Spontaneous
  Country: US (occurrence: US)
  Receive Date: 20140521
  Receipt Date: 20140930
  Transmission Date: 20150326
  Serious: Yes (Hospitalization, Other)
  Sender: FDA-Public Use
  Company Number: US-UCBSA-121034

PATIENT
  Age: 70 Year
  Sex: Female
  Weight: 35.1 kg

DRUGS (2)
  1. CIMZIA [Suspect]
     Active Substance: CERTOLIZUMAB PEGOL
     Indication: RHEUMATOID ARTHRITIS
     Dosage: 400 MG, MONTHLY (QM)
     Route: 058
     Dates: start: 20131114, end: 20140221
  2. METHOTREXATE [Concomitant]
     Active Substance: METHOTREXATE
     Indication: RHEUMATOID ARTHRITIS
     Dosage: 20 MG, WEEKLY (QW)
     Route: 058
     Dates: start: 200904, end: 2014

REACTIONS (3)
  - Sinusitis [Recovered/Resolved]
  - Respiratory failure [Unknown]
  - Acute interstitial pneumonitis [Unknown]

NARRATIVE: CASE EVENT DATE: 2014
